FAERS Safety Report 20611957 (Version 1)
Quarter: 2022Q1

REPORT INFORMATION
  Report Type: Spontaneous
  Country: US (occurrence: None)
  Receive Date: 20220317
  Receipt Date: 20220317
  Transmission Date: 20220424
  Serious: No
  Sender: FDA-Public Use
  Company Number: None

PATIENT

DRUGS (1)
  1. CISPLATIN [Suspect]
     Active Substance: CISPLATIN

REACTIONS (3)
  - Incorrect product administration duration [None]
  - Incorrect dose administered by device [None]
  - Device infusion issue [None]

NARRATIVE: CASE EVENT DATE: 20220202
